FAERS Safety Report 8110634-9 (Version None)
Quarter: 2012Q1

REPORT INFORMATION
  Report Type: 
  Country: None (occurrence: None)
  Receive Date: 20120203
  Receipt Date: 20120201
  Transmission Date: 20120608
  Serious: No
  Sender: FDA-Public Use
  Company Number: US-PFIZER INC-2012027874

PATIENT
  Sex: Female

DRUGS (3)
  1. LYRICA [Suspect]
     Dosage: 50 MG, 3X/DAY
  2. LAMOTRIGINE [Suspect]
     Dosage: UNK
  3. LYRICA [Suspect]
     Dosage: 50MG DAILY

REACTIONS (7)
  - OEDEMA PERIPHERAL [None]
  - DRUG INEFFECTIVE [None]
  - PAIN [None]
  - SKIN WRINKLING [None]
  - EYELID OEDEMA [None]
  - HEART RATE INCREASED [None]
  - SWELLING FACE [None]
